FAERS Safety Report 5819752-9 (Version None)
Quarter: 2008Q3

REPORT INFORMATION
  Report Type: 
  Country: None (occurrence: None)
  Receive Date: 20080718
  Receipt Date: 20080711
  Transmission Date: 20090109
  Serious: Yes (Hospitalization)
  Sender: FDA-Public Use
  Company Number: 2008JP003284

PATIENT
  Age: 54 Year
  Sex: Male

DRUGS (3)
  1. PROGRAF [Suspect]
     Indication: RHEUMATOID ARTHRITIS
     Dosage: 1 MG, UNKNOWN/D, ORAL
     Route: 048
     Dates: start: 20080304, end: 20080701
  2. PREDONINE(PREDNISOLONE SODIUM SUCCINATE) PER ORAL NOS [Suspect]
     Dosage: 5 MG,/D, ORAL
     Route: 048
     Dates: start: 20080304, end: 20080701
  3. OMEPRAL (OMEPRAZOLE SODIUM) PER ORAL NOS [Suspect]
     Dosage: 20 MG,D, ORAL
     Route: 048
     Dates: end: 20080701

REACTIONS (4)
  - BLOOD URINE PRESENT [None]
  - GLUCOSE URINE PRESENT [None]
  - NEPHROTIC SYNDROME [None]
  - OEDEMA PERIPHERAL [None]
